FAERS Safety Report 7513416-1 (Version None)
Quarter: 2011Q2

REPORT INFORMATION
  Report Type: 
  Country: None (occurrence: None)
  Receive Date: 20110531
  Receipt Date: 20110517
  Transmission Date: 20111010
  Serious: Yes (Hospitalization, Other)
  Sender: FDA-Public Use
  Company Number: US-UCBSA-033122

PATIENT
  Sex: Female
  Weight: 52.16 kg

DRUGS (4)
  1. VITAMINS [Concomitant]
  2. CIMZIA [Suspect]
     Indication: CROHN'S DISEASE
     Dosage: INITIAL DOSE
     Route: 058
     Dates: start: 20110101
  3. CIMZIA [Suspect]
     Route: 058
     Dates: start: 20110201
  4. PREDNISONE [Concomitant]

REACTIONS (2)
  - HAEMORRHAGE [None]
  - INTESTINAL OBSTRUCTION [None]
